FAERS Safety Report 12488615 (Version 1)
Quarter: 2016Q2

REPORT INFORMATION
  Report Type: Spontaneous
  Country: FR (occurrence: FR)
  Receive Date: 20160622
  Receipt Date: 20160622
  Transmission Date: 20160815
  Serious: Yes (Hospitalization)
  Sender: FDA-Public Use
  Company Number: FR-SA-2016SA112927

PATIENT
  Age: 67 Year
  Sex: Female

DRUGS (12)
  1. DAFALGAN [Suspect]
     Active Substance: ACETAMINOPHEN
     Route: 048
     Dates: start: 20160420, end: 20160420
  2. SERETIDE [Concomitant]
     Active Substance: FLUTICASONE PROPIONATE\SALMETEROL XINAFOATE
     Dosage: 250/25 MCG: DOSE
  3. CORTANCYL [Concomitant]
     Active Substance: PREDNISONE
  4. NASONEX [Concomitant]
     Active Substance: MOMETASONE FUROATE
  5. MORPHINE [Suspect]
     Active Substance: MORPHINE
     Route: 042
  6. PRIMPERAN [Suspect]
     Active Substance: METOCLOPRAMIDE HYDROCHLORIDE
     Route: 042
     Dates: start: 20160420, end: 20160420
  7. PANTOPRAZOLE [Suspect]
     Active Substance: PANTOPRAZOLE SODIUM
     Route: 065
     Dates: start: 20160420, end: 20160420
  8. CEFAZOLIN [Suspect]
     Active Substance: CEFAZOLIN
     Route: 042
     Dates: start: 20160420, end: 20160420
  9. NEFOPAM [Suspect]
     Active Substance: NEFOPAM
     Route: 065
     Dates: start: 20160420, end: 20160420
  10. EXACYL [Suspect]
     Active Substance: TRANEXAMIC ACID
     Route: 042
     Dates: start: 20160420, end: 20160420
  11. LEXOMIL [Suspect]
     Active Substance: BROMAZEPAM
     Route: 048
     Dates: start: 20160420, end: 20160420
  12. LOVENOX [Suspect]
     Active Substance: ENOXAPARIN SODIUM
     Route: 058
     Dates: start: 20160420, end: 20160420

REACTIONS (2)
  - Hepatocellular injury [Recovering/Resolving]
  - Cholestasis [Recovering/Resolving]

NARRATIVE: CASE EVENT DATE: 20160426
